FAERS Safety Report 5649434-8 (Version None)
Quarter: 2008Q1

REPORT INFORMATION
  Report Type: 
  Country: None (occurrence: None)
  Receive Date: 20080304
  Receipt Date: 20080220
  Transmission Date: 20080703
  Serious: Yes (Life-Threatening, Hospitalization)
  Sender: FDA-Public Use
  Company Number: DE-BAYER-200710004BVD

PATIENT
  Age: 41 Year
  Sex: Male
  Weight: 101 kg

DRUGS (7)
  1. SORAFENIB [Suspect]
     Indication: NON-SMALL CELL LUNG CANCER
     Dosage: TOTAL DAILY DOSE: 800 MG  UNIT DOSE: 200 MG
     Route: 048
     Dates: start: 20061205
  2. PACLITAXEL [Suspect]
     Indication: NON-SMALL CELL LUNG CANCER
     Route: 042
     Dates: start: 20061204
  3. CARBOPLATIN [Suspect]
     Indication: NON-SMALL CELL LUNG CANCER
     Route: 042
     Dates: start: 20061204
  4. DEXAMETHASONE TAB [Concomitant]
     Route: 042
     Dates: start: 20061204, end: 20061204
  5. KEVATRIL [Concomitant]
     Route: 042
     Dates: start: 20061204, end: 20061204
  6. ECURAL [Concomitant]
     Route: 003
  7. POLYHEXANID [Concomitant]
     Route: 003

REACTIONS (1)
  - THROMBOCYTOPENIA [None]
